FAERS Safety Report 10267285 (Version 1)
Quarter: 2014Q2

REPORT INFORMATION
  Report Type: Spontaneous
  Country: HU (occurrence: HU)
  Receive Date: 20140630
  Receipt Date: 20140630
  Transmission Date: 20141212
  Serious: Yes (Death)
  Sender: FDA-Public Use
  Company Number: HU-ROCHE-1426160

PATIENT
  Sex: Female

DRUGS (3)
  1. AVASTIN [Suspect]
     Indication: OVARIAN CANCER
     Route: 065
  2. CARBOPLATIN [Suspect]
     Indication: OVARIAN CANCER
     Route: 065
  3. PACLITAXEL [Suspect]
     Indication: OVARIAN CANCER
     Route: 065

REACTIONS (1)
  - Peritonitis [Fatal]
